FAERS Safety Report 8365195-6 (Version None)
Quarter: 2012Q2

REPORT INFORMATION
  Report Type: 
  Country: None (occurrence: None)
  Receive Date: 20120516
  Receipt Date: 20120507
  Transmission Date: 20120825
  Serious: Yes (Other)
  Sender: FDA-Public Use
  Company Number: CA-ABBOTT-12P-028-0933513-00

PATIENT
  Sex: Female

DRUGS (5)
  1. XALATAN [Concomitant]
     Indication: UVEITIS
     Dosage: 1 DROP IN BOTH EYES
     Route: 047
     Dates: end: 20120101
  2. PRED FORTE [Concomitant]
     Indication: UVEITIS
     Dosage: 1 DROP IN BOTH EYES
     Route: 047
  3. HUMIRA [Suspect]
     Route: 058
     Dates: start: 20120507
  4. MAXIDEX [Concomitant]
     Indication: UVEITIS
     Dosage: 1 DROP IN BOTH EYES
     Route: 047
  5. HUMIRA [Suspect]
     Indication: ANKYLOSING SPONDYLITIS
     Route: 058
     Dates: start: 20110914, end: 20120430

REACTIONS (5)
  - INTRAOCULAR PRESSURE INCREASED [None]
  - PAIN [None]
  - UVEITIS [None]
  - GLAUCOMA [None]
  - MUSCULOSKELETAL STIFFNESS [None]
